FAERS Safety Report 23481213 (Version 4)
Quarter: 2024Q1

REPORT INFORMATION
  Report Type: Spontaneous
  Country: US (occurrence: US)
  Receive Date: 20240205
  Receipt Date: 20240319
  Transmission Date: 20240410
  Serious: No
  Sender: FDA-Public Use
  Company Number: US-PFIZER INC-202400016356

PATIENT
  Age: 14 Year
  Sex: Male
  Weight: 40.816 kg

DRUGS (3)
  1. GENOTROPIN [Suspect]
     Active Substance: SOMATROPIN
     Indication: Growth hormone deficiency
     Dosage: ALT 1.8 + 2.0 MG 6 DAYS A WEEK
     Dates: start: 202401
  2. GENOTROPIN [Suspect]
     Active Substance: SOMATROPIN
     Dosage: ALT 1.8 + 2.0 MG 6 DAYS A WEEK
     Dates: start: 202401
  3. KEPPRA [Concomitant]
     Active Substance: LEVETIRACETAM
     Indication: Epilepsy
     Dosage: UNK, 2X/DAY

REACTIONS (4)
  - Drug dose omission by device [Unknown]
  - Device leakage [Unknown]
  - Device breakage [Unknown]
  - Device mechanical issue [Unknown]

NARRATIVE: CASE EVENT DATE: 20240101
